FAERS Safety Report 24965327 (Version 1)
Quarter: 2025Q1

REPORT INFORMATION
  Report Type: Report from Study
  Country: US (occurrence: US)
  Receive Date: 20250213
  Receipt Date: 20250213
  Transmission Date: 20250409
  Serious: Yes (Death, Hospitalization)
  Sender: BAUSCH AND LOMB
  Company Number: US-BAUSCH-BL-2025-001917

PATIENT
  Age: 75 Year
  Sex: Male

DRUGS (1)
  1. XIFAXAN [Suspect]
     Active Substance: RIFAXIMIN
     Indication: Product used for unknown indication
     Dosage: BID
     Route: 048
     Dates: end: 20250101

REACTIONS (2)
  - Hepatic cirrhosis [Fatal]
  - Haematemesis [Unknown]

NARRATIVE: CASE EVENT DATE: 20250101
